FAERS Safety Report 9349727 (Version 1)
Quarter: 2013Q2

REPORT INFORMATION
  Report Type: Spontaneous
  Country: CN (occurrence: CN)
  Receive Date: 20130614
  Receipt Date: 20130614
  Transmission Date: 20140414
  Serious: Yes (Other)
  Sender: FDA-Public Use
  Company Number: CN-GILEAD-2013-0076883

PATIENT
  Age: 43 Year
  Sex: 0

DRUGS (3)
  1. ADEFOVIR DIPIVOXIL [Suspect]
     Indication: CHRONIC HEPATITIS B
     Dosage: UNK
  2. ENTECAVIR [Suspect]
     Indication: CHRONIC HEPATITIS B
     Dosage: UNK
  3. LAMIVUDINE [Suspect]
     Indication: CHRONIC HEPATITIS B
     Dosage: UNK

REACTIONS (7)
  - Genotype drug resistance test positive [Unknown]
  - Genotype drug resistance test positive [Unknown]
  - Genotype drug resistance test positive [Unknown]
  - Genotype drug resistance test positive [Unknown]
  - Genotype drug resistance test positive [Unknown]
  - Drug ineffective [Unknown]
  - Viral load increased [Unknown]
